FAERS Safety Report 8969454 (Version 1)
Quarter: 2012Q4

REPORT INFORMATION
  Report Type: 
  Country: US (occurrence: US)
  Receive Date: 20121217
  Receipt Date: 20121217
  Transmission Date: 20130627
  Serious: No
  Sender: FDA-Public Use
  Company Number: US-B.I. PHARMACEUTICALS,INC./RIDGEFIELD-2012-BI-01438BP

PATIENT
  Sex: Female

DRUGS (9)
  1. SPIRIVA [Suspect]
     Indication: EMPHYSEMA
     Dosage: 18 mcg
     Route: 055
     Dates: start: 2007, end: 201201
  2. DULCOLAX TABLETS [Suspect]
     Indication: CONSTIPATION
     Dosage: 15 mg
     Route: 048
     Dates: start: 201209
  3. HYDROCODONE [Concomitant]
     Indication: PAIN
     Route: 048
  4. OMEPRAZOLE [Concomitant]
     Indication: DYSPEPSIA
     Dosage: 20 mg
     Route: 048
  5. DIOVAN [Concomitant]
     Indication: HYPERTENSION
     Dosage: 160 mg
     Route: 048
  6. OCUVITE [Concomitant]
     Indication: MACULAR DEGENERATION
     Route: 048
  7. PAROXETINE [Concomitant]
     Indication: ANXIETY
     Dosage: 40 mg
     Route: 048
  8. SYNTHROID [Concomitant]
     Indication: HYPOTHYROIDISM
     Dosage: 125 mcg
     Route: 048
  9. VITAMIN D [Concomitant]
     Route: 048

REACTIONS (4)
  - Chromaturia [Recovered/Resolved]
  - Constipation [Recovered/Resolved]
  - Glaucoma [Not Recovered/Not Resolved]
  - Nephrolithiasis [Recovered/Resolved]
